FAERS Safety Report 25011837 (Version 2)
Quarter: 2025Q1

REPORT INFORMATION
  Report Type: Spontaneous
  Country: FR (occurrence: FR)
  Receive Date: 20250226
  Receipt Date: 20250227
  Transmission Date: 20250409
  Serious: Yes (Other)
  Sender: ROCHE
  Company Number: None

PATIENT
  Age: 45 Year
  Sex: Male

DRUGS (3)
  1. XELODA [Suspect]
     Active Substance: CAPECITABINE
     Indication: Pancreatic carcinoma
     Route: 065
     Dates: start: 202402, end: 202407
  2. AVASTIN [Suspect]
     Active Substance: BEVACIZUMAB
     Indication: Pancreatic carcinoma
     Route: 065
     Dates: start: 202402, end: 202407
  3. TEMODAL [Suspect]
     Active Substance: TEMOZOLOMIDE
     Indication: Pancreatic carcinoma
     Route: 065
     Dates: start: 202402, end: 202407

REACTIONS (2)
  - Dyslipidaemia [Recovering/Resolving]
  - Xanthomatosis [Recovering/Resolving]

NARRATIVE: CASE EVENT DATE: 20240801
